FAERS Safety Report 8276464-2 (Version None)
Quarter: 2012Q2

REPORT INFORMATION
  Report Type: 
  Country: None (occurrence: None)
  Receive Date: 20120412
  Receipt Date: 20120409
  Transmission Date: 20120825
  Serious: Yes (Death)
  Sender: FDA-Public Use
  Company Number: US-CELGENEUS-163-21880-12040894

PATIENT
  Sex: Male
  Weight: 65.376 kg

DRUGS (6)
  1. GLYBURIDE [Concomitant]
     Dosage: 2.5 MILLIGRAM
     Route: 065
  2. REVLIMID [Suspect]
     Indication: MULTIPLE MYELOMA
     Dosage: 25 MILLIGRAM
     Route: 048
     Dates: start: 20110929, end: 20120312
  3. PRAVASTATIN [Concomitant]
     Dosage: 20 MILLIGRAM
     Route: 065
  4. OMEPRAZOLE [Concomitant]
     Dosage: 20 MILLIGRAM
     Route: 065
  5. LISINOPRIL [Concomitant]
     Dosage: 5 MILLIGRAM
     Route: 065
  6. BARACLUDE [Concomitant]
     Dosage: .5 MILLIGRAM
     Route: 065

REACTIONS (1)
  - DEATH [None]
